FAERS Safety Report 6048242-6 (Version None)
Quarter: 2009Q1

REPORT INFORMATION
  Report Type: 
  Country: None (occurrence: None)
  Receive Date: 20090123
  Receipt Date: 20090119
  Transmission Date: 20090719
  Serious: Yes (Death, Hospitalization)
  Sender: FDA-Public Use
  Company Number: FR-BRISTOL-MYERS SQUIBB COMPANY-14475925

PATIENT
  Age: 80 Year
  Sex: Male

DRUGS (5)
  1. SINEMET [Suspect]
     Indication: PARKINSON'S DISEASE
     Dosage: STRTD 100MG 1/2TAB 3/D AUG08:1TAB A.M,1/2 AT NOON + P.M AUG08:DCRSED TO INITIAL LVL  1DF=1.5 TAB
     Dates: start: 20080601, end: 20080801
  2. PLAVIX [Suspect]
     Dates: start: 20080808, end: 20080801
  3. ARICEPT [Concomitant]
     Dates: start: 20070301, end: 20080801
  4. TRANSILANE [Concomitant]
     Dosage: 1 DOSAGE FORM= .5 (UNITS NOT SPECIFIED).
  5. PEPDINE [Concomitant]

REACTIONS (2)
  - HYPOTENSION [None]
  - SUDDEN DEATH [None]
